FAERS Safety Report 6745829-X (Version None)
Quarter: 2010Q2

REPORT INFORMATION
  Report Type: 
  Country: None (occurrence: None)
  Receive Date: 20100528
  Receipt Date: 20100517
  Transmission Date: 20101027
  Serious: Yes (Death, Life-Threatening, Other)
  Sender: FDA-Public Use
  Company Number: US-GENZYME-CLOF-1000053

PATIENT
  Sex: Male
  Weight: 78 kg

DRUGS (12)
  1. CLOLAR [Suspect]
     Indication: ACUTE MYELOID LEUKAEMIA
     Dosage: 20 MG/M2, QDX5
     Route: 042
     Dates: start: 20060724, end: 20060728
  2. MELPHALAN HYDROCHLORIDE [Suspect]
     Indication: ACUTE MYELOID LEUKAEMIA
     Dosage: 190 MG, ONCE
     Route: 042
     Dates: start: 20060729, end: 20060729
  3. CAMPATH [Suspect]
     Indication: ACUTE MYELOID LEUKAEMIA
     Dosage: 20 MG, QDX5
     Route: 042
     Dates: start: 20060724, end: 20060728
  4. NEUPOGEN [Concomitant]
     Indication: DRUG USE FOR UNKNOWN INDICATION
     Dosage: 480 UNK, UNK
     Route: 058
     Dates: start: 20060801, end: 20060805
  5. PROGRAF [Concomitant]
     Indication: DRUG USE FOR UNKNOWN INDICATION
     Dosage: 2.2 UNK, UNK
     Route: 065
     Dates: start: 20060729, end: 20060802
  6. ZYPREXA [Concomitant]
     Indication: DRUG USE FOR UNKNOWN INDICATION
     Dosage: UNK UNK, UNK
     Route: 065
     Dates: start: 20060731, end: 20060803
  7. LEVOPHED [Concomitant]
     Indication: DRUG USE FOR UNKNOWN INDICATION
     Dosage: UNK UNK, UNK
     Route: 065
     Dates: start: 20060801, end: 20060802
  8. VASOPRESSIN [Concomitant]
     Indication: DRUG USE FOR UNKNOWN INDICATION
     Dosage: UNK UNK, UNK
     Route: 065
     Dates: start: 20060801, end: 20060805
  9. DAPTOMYCIN [Concomitant]
     Indication: DRUG USE FOR UNKNOWN INDICATION
     Dosage: 450 UNK, UNK
     Route: 065
     Dates: start: 20060724, end: 20060802
  10. FLAGYL [Concomitant]
     Indication: DRUG USE FOR UNKNOWN INDICATION
     Dosage: 500 MG, UNK
     Route: 065
     Dates: start: 20060729, end: 20060805
  11. ACYCLOVIR [Concomitant]
     Indication: DRUG USE FOR UNKNOWN INDICATION
     Dosage: 400 UNK, UNK
     Route: 065
     Dates: start: 20060724, end: 20060808
  12. DILAUDID [Concomitant]
     Indication: DRUG USE FOR UNKNOWN INDICATION
     Dosage: UNK UNK, UNK
     Route: 065

REACTIONS (4)
  - ACUTE MYELOID LEUKAEMIA [None]
  - HEPATOSPLENOMEGALY [None]
  - SEPSIS [None]
  - SEPTIC SHOCK [None]
